FAERS Safety Report 9252405 (Version 1)
Quarter: 2013Q1

REPORT INFORMATION
  Report Type: Spontaneous
  Country: US (occurrence: None)
  Receive Date: 20130305
  Receipt Date: 20130305
  Transmission Date: 20140127
  Serious: Yes (Other)
  Sender: FDA-Public Use
  Company Number: 163-21880-12092524

PATIENT
  Age: 59 Year
  Sex: Female
  Weight: 61.24 kg

DRUGS (7)
  1. REVLIMID [Suspect]
     Indication: MYELODYSPLASTIC SYNDROME
     Dosage: 10MG, 1 IN 1 D, PO
     Route: 048
     Dates: start: 201010
  2. ALLOPURINOL [Concomitant]
  3. COUMADIN (WARFARIN SODIUM) [Concomitant]
  4. LASIX (FUROSEMIDE) [Concomitant]
  5. LISINOPRIL (LISINOPRIL) [Concomitant]
  6. METOPROLOL (METOPROLOL) [Concomitant]
  7. NIFEDIPINE (NIFEDIPINE) [Concomitant]

REACTIONS (1)
  - Rash pruritic [None]
